FAERS Safety Report 16925384 (Version 3)
Quarter: 2019Q4

REPORT INFORMATION
  Report Type: Report from Study
  Country: US (occurrence: US)
  Receive Date: 20191016
  Receipt Date: 20191205
  Transmission Date: 20200122
  Serious: No
  Sender: FDA-Public Use
  Company Number: US-GLAXOSMITHKLINE-US2019TSO184964

PATIENT
  Age: 58 Year
  Sex: Female

DRUGS (2)
  1. LOVENOX [Suspect]
     Active Substance: ENOXAPARIN SODIUM
     Indication: THROMBOSIS
     Dosage: 120 MG, INJECTION TWICE A DAY
     Route: 058
  2. NIRAPARIB [Suspect]
     Active Substance: NIRAPARIB
     Indication: OVARIAN CANCER
     Dosage: 300 MG DAILY IN MORNING WITH FOOD
     Route: 048
     Dates: start: 20191005

REACTIONS (8)
  - Heart rate increased [Recovered/Resolved]
  - Neoplasm progression [Unknown]
  - Peripheral swelling [Unknown]
  - Vein collapse [Unknown]
  - Insomnia [Recovering/Resolving]
  - Contusion [Unknown]
  - Palpitations [Recovered/Resolved]
  - Alanine aminotransferase increased [Unknown]

NARRATIVE: CASE EVENT DATE: 201910
